FAERS Safety Report 22004840 (Version 2)
Quarter: 2023Q1

REPORT INFORMATION
  Report Type: Spontaneous
  Country: JP (occurrence: JP)
  Receive Date: 20230217
  Receipt Date: 20230227
  Transmission Date: 20230417
  Serious: Yes (Hospitalization, Other)
  Sender: FDA-Public Use
  Company Number: JP-GLAXOSMITHKLINE-JP2023JPN023546

PATIENT

DRUGS (2)
  1. DAPRODUSTAT [Suspect]
     Active Substance: DAPRODUSTAT
     Dosage: UNK
     Dates: end: 20230120
  2. ROXADUSTAT [Concomitant]
     Active Substance: ROXADUSTAT
     Dosage: UNK
     Dates: start: 20230121

REACTIONS (4)
  - Hypothyroidism [Unknown]
  - Hospitalisation [Unknown]
  - Pneumonia aspiration [Unknown]
  - Immobilisation syndrome [Unknown]

NARRATIVE: CASE EVENT DATE: 20230211
